FAERS Safety Report 20822421 (Version 1)
Quarter: 2022Q2

REPORT INFORMATION
  Report Type: Spontaneous
  Country: CN (occurrence: CN)
  Receive Date: 20220512
  Receipt Date: 20220512
  Transmission Date: 20220720
  Serious: Yes (Other)
  Sender: FDA-Public Use
  Company Number: CN-BRACCO-2022CN01776

PATIENT
  Age: 33 Year
  Sex: Female

DRUGS (3)
  1. SULFUR HEXAFLUORIDE [Suspect]
     Active Substance: SULFUR HEXAFLUORIDE
     Indication: Ultrasound thyroid
     Dosage: 2.4 ML, SINGLE
     Route: 042
     Dates: start: 20220509, end: 20220509
  2. SULFUR HEXAFLUORIDE [Suspect]
     Active Substance: SULFUR HEXAFLUORIDE
     Indication: Ultrasound thyroid
     Dosage: 2.4 ML, SINGLE
     Route: 042
     Dates: start: 20220509, end: 20220509
  3. SULFUR HEXAFLUORIDE [Suspect]
     Active Substance: SULFUR HEXAFLUORIDE
     Indication: Ultrasound thyroid
     Dosage: 2.4 ML, SINGLE
     Route: 042
     Dates: start: 20220509, end: 20220509

REACTIONS (4)
  - Off label use [Recovered/Resolved]
  - Discomfort [Recovered/Resolved]
  - Syncope [Recovered/Resolved]
  - Hypotension [Recovered/Resolved]

NARRATIVE: CASE EVENT DATE: 20220509
